FAERS Safety Report 21490978 (Version 1)
Quarter: 2022Q4

REPORT INFORMATION
  Report Type: Spontaneous
  Country: US (occurrence: US)
  Receive Date: 20221021
  Receipt Date: 20221021
  Transmission Date: 20230113
  Serious: No
  Sender: FDA-Public Use
  Company Number: US-BRISTOL-MYERS SQUIBB COMPANY-2022-125469

PATIENT
  Age: 30 Year
  Sex: Male

DRUGS (1)
  1. ONUREG [Suspect]
     Active Substance: AZACITIDINE
     Indication: Product used for unknown indication
     Dosage: DOSE : 300MG;     FREQ : TAKE 1 TABLET BY MOUTH ONCE DAILY FOR 14 DAYS ON AND 14 DAYS OFF
     Route: 048

REACTIONS (2)
  - Nausea [Unknown]
  - Urinary tract infection [Unknown]
